FAERS Safety Report 4652689-X (Version None)
Quarter: 2005Q2

REPORT INFORMATION
  Report Type: 
  Country: None (occurrence: None)
  Receive Date: 20050502
  Receipt Date: 20050419
  Transmission Date: 20051028
  Serious: Yes (Death)
  Sender: FDA-Public Use
  Company Number: 2005063029

PATIENT
  Age: 35 Year
  Sex: Male

DRUGS (2)
  1. GEODON [Suspect]
     Indication: SCHIZOPHRENIA
     Dosage: ORAL
     Route: 048
     Dates: start: 20030101
  2. SERTRALINE HCL [Concomitant]

REACTIONS (5)
  - HYPERTHERMIA [None]
  - MUSCLE RIGIDITY [None]
  - NEUROLEPTIC MALIGNANT SYNDROME [None]
  - PNEUMONIA [None]
  - RENAL FAILURE [None]
